FAERS Safety Report 5194370-7 (Version None)
Quarter: 2006Q4

REPORT INFORMATION
  Report Type: 
  Country: None (occurrence: None)
  Receive Date: 20061228
  Receipt Date: 20061218
  Transmission Date: 20070319
  Serious: Yes (Other)
  Sender: FDA-Public Use
  Company Number: US-PFIZER INC-2006154517

PATIENT
  Sex: Female
  Weight: 88.9 kg

DRUGS (4)
  1. LIPITOR [Suspect]
     Indication: BLOOD CHOLESTEROL INCREASED
  2. PROZAC [Concomitant]
  3. ZOLOFT [Concomitant]
  4. SYNTHROID [Concomitant]

REACTIONS (6)
  - ASTHENIA [None]
  - BLOOD CREATINE PHOSPHOKINASE INCREASED [None]
  - HEPATIC ENZYME INCREASED [None]
  - MOVEMENT DISORDER [None]
  - MUSCLE ATROPHY [None]
  - PAIN IN EXTREMITY [None]
